FAERS Safety Report 4367852-5 (Version None)
Quarter: 2004Q2

REPORT INFORMATION
  Report Type: 
  Country: None (occurrence: None)
  Receive Date: 20040601
  Receipt Date: 20040601
  Transmission Date: 20050107
  Serious: No
  Sender: FDA-Public Use
  Company Number: None

PATIENT
  Sex: Male
  Weight: 115.6672 kg

DRUGS (4)
  1. ERBITUX-CETUXIMAB 100MG -2MG/ML- IMCLONE SYSTEMS INCORPORATED [Suspect]
     Indication: COLON CANCER METASTATIC
     Dosage: 800MG 2 HOURS INTRAVENOUS
     Route: 042
     Dates: start: 20040527, end: 20040527
  2. GRANISETRON [Concomitant]
  3. DIPHENHYDRAMINE HCL [Concomitant]
  4. ACETAMINOPHEN [Concomitant]

REACTIONS (2)
  - DYSPNOEA [None]
  - INFUSION RELATED REACTION [None]
